FAERS Safety Report 8364504-1 (Version None)
Quarter: 2012Q2

REPORT INFORMATION
  Report Type: 
  Country: None (occurrence: None)
  Receive Date: 20120516
  Receipt Date: 20120418
  Transmission Date: 20120825
  Serious: Yes (Other)
  Sender: FDA-Public Use
  Company Number: NZ-PURDUE-USA-2012-0087226

PATIENT
  Sex: Female

DRUGS (4)
  1. MOOD STABILISERS [Concomitant]
     Indication: PRODUCT USED FOR UNKNOWN INDICATION
  2. OXYCONTIN [Suspect]
     Indication: BLADDER PAIN
     Dosage: UNK
     Route: 048
     Dates: start: 20080101, end: 20110901
  3. OXYNORM [Suspect]
     Indication: BLADDER PAIN
     Dosage: UNK
     Route: 048
     Dates: start: 20090101
  4. ANTIDEPRESSANTS [Concomitant]
     Indication: PRODUCT USED FOR UNKNOWN INDICATION

REACTIONS (13)
  - DIARRHOEA [None]
  - PSYCHOTIC DISORDER [None]
  - CRYING [None]
  - FEELING COLD [None]
  - DRUG WITHDRAWAL SYNDROME [None]
  - FATIGUE [None]
  - HEADACHE [None]
  - RHINORRHOEA [None]
  - CONSTIPATION [None]
  - HOMICIDAL IDEATION [None]
  - TREMOR [None]
  - VOMITING [None]
  - PAIN IN EXTREMITY [None]
